FAERS Safety Report 5962454-9 (Version None)
Quarter: 2008Q4

REPORT INFORMATION
  Report Type: 
  Country: None (occurrence: None)
  Receive Date: 20081121
  Receipt Date: 20081111
  Transmission Date: 20090506
  Serious: Yes (Hospitalization, Other)
  Sender: FDA-Public Use
  Company Number: US-PFIZER INC-2007091262

PATIENT
  Sex: Female
  Weight: 66 kg

DRUGS (8)
  1. DILANTIN [Suspect]
     Indication: CONVULSION PROPHYLAXIS
     Route: 048
     Dates: start: 20051127, end: 20051221
  2. NEURONTIN [Concomitant]
  3. TEGRETOL [Concomitant]
  4. OXYCONTIN [Concomitant]
  5. OXYCODONE HCL [Concomitant]
  6. HYDROCODONE BITARTRATE [Concomitant]
  7. ALL OTHER THERAPEUTIC PRODUCTS [Concomitant]
  8. KEPPRA [Concomitant]
     Indication: CONVULSION PROPHYLAXIS
     Dates: start: 20051221

REACTIONS (23)
  - ABDOMINAL PAIN [None]
  - AGITATION [None]
  - BRONCHITIS [None]
  - CEREBROVASCULAR ACCIDENT [None]
  - CONTUSION [None]
  - COUGH [None]
  - DECUBITUS ULCER [None]
  - DEEP VEIN THROMBOSIS [None]
  - DIARRHOEA [None]
  - FALL [None]
  - HERPES ZOSTER [None]
  - HERPES ZOSTER OPHTHALMIC [None]
  - HYPOTENSION [None]
  - OSTEOPENIA [None]
  - OSTEOPOROSIS [None]
  - OTITIS MEDIA [None]
  - PAIN [None]
  - PAIN IN EXTREMITY [None]
  - STAPHYLOCOCCAL SEPSIS [None]
  - SUBDURAL HAEMATOMA EVACUATION [None]
  - TACHYCARDIA [None]
  - TINNITUS [None]
  - TOXIC EPIDERMAL NECROLYSIS [None]
